FAERS Safety Report 19875445 (Version 1)
Quarter: 2021Q3

REPORT INFORMATION
  Report Type: Other
  Country: ES (occurrence: ES)
  Receive Date: 20210924
  Receipt Date: 20210924
  Transmission Date: 20211014
  Serious: Yes (Hospitalization)
  Sender: FDA-Public Use
  Company Number: ES-ROCHE-2918685

PATIENT
  Age: 35 Year
  Sex: Female

DRUGS (2)
  1. RITUXIMAB. [Suspect]
     Active Substance: RITUXIMAB
     Indication: IMMUNOADSORPTION THERAPY
     Dosage: SHE REQUIRED TEN IMMUNOADSORPTION SESSIONS AND RITUXIMAB BEFORE TRANSPLANTATION
     Route: 065
  2. TACROLIMUS. [Suspect]
     Active Substance: TACROLIMUS
     Indication: TRANSPLANT
     Route: 065

REACTIONS (1)
  - COVID-19 [Recovering/Resolving]
